FAERS Safety Report 5386129-2 (Version None)
Quarter: 2007Q3

REPORT INFORMATION
  Report Type: 
  Country: None (occurrence: None)
  Receive Date: 20070711
  Receipt Date: 20070711
  Transmission Date: 20080115
  Serious: Yes (Hospitalization)
  Sender: FDA-Public Use
  Company Number: None

PATIENT
  Sex: Male

DRUGS (4)
  1. ARIXTRA [Suspect]
     Indication: DEEP VEIN THROMBOSIS
     Dosage: 7.5MG QD SQ
     Route: 058
     Dates: start: 20070125, end: 20070127
  2. ARIXTRA [Suspect]
     Indication: DISEASE RECURRENCE
     Dosage: 7.5MG QD SQ
     Route: 058
     Dates: start: 20070125, end: 20070127
  3. WARFARIN SODIUM [Suspect]
     Indication: DEEP VEIN THROMBOSIS
     Dosage: 2.5 EXCEPT TH, SU 5MG QD PO LONG TERM
     Route: 048
  4. WARFARIN SODIUM [Suspect]
     Indication: DISEASE RECURRENCE
     Dosage: 2.5 EXCEPT TH, SU 5MG QD PO LONG TERM
     Route: 048

REACTIONS (2)
  - IMPLANT SITE HAEMATOMA [None]
  - IMPLANT SITE INFECTION [None]
